FAERS Safety Report 7293715-1 (Version None)
Quarter: 2011Q1

REPORT INFORMATION
  Report Type: 
  Country: None (occurrence: None)
  Receive Date: 20110215
  Receipt Date: 20110214
  Transmission Date: 20110831
  Serious: Yes (Other)
  Sender: FDA-Public Use
  Company Number: D0070300A

PATIENT
  Age: 76 Year
  Sex: Female

DRUGS (1)
  1. TYVERB [Suspect]
     Route: 048
     Dates: start: 20110201

REACTIONS (2)
  - ANGINA PECTORIS [None]
  - DIARRHOEA [None]
